FAERS Safety Report 16083969 (Version 1)
Quarter: 2019Q2

REPORT INFORMATION
  Report Type: Spontaneous
  Country: US (occurrence: US)
  Receive Date: 20190316
  Receipt Date: 20190316
  Transmission Date: 20190711
  Serious: No
  Sender: FDA-Public Use
  Company Number: None

PATIENT
  Age: 64 Year
  Sex: Female
  Weight: 59.4 kg

DRUGS (10)
  1. VIT. D3 1000 IU [Concomitant]
  2. ALPHA LIPOIC ACID 300 MG [Concomitant]
  3. L-LYSINE 500 MG [Concomitant]
  4. COENZYMEQ10 200 MG [Concomitant]
  5. FOLIC ACID 800 MCG [Concomitant]
  6. CLARITIN [Concomitant]
     Active Substance: LORATADINE
  7. AIMOVIG [Suspect]
     Active Substance: ERENUMAB-AOOE
     Indication: MIGRAINE
     Dosage: ?          QUANTITY:2 INJECTION(S);OTHER FREQUENCY:MONTHLY;?
     Route: 058
     Dates: start: 20181003, end: 20190303
  8. VALACYCLOVIR [Concomitant]
     Active Substance: VALACYCLOVIR HYDROCHLORIDE
  9. OMEGA-3 180 MG [Concomitant]
  10. VIT. B2 100MG [Concomitant]

REACTIONS (1)
  - Injection site erythema [None]

NARRATIVE: CASE EVENT DATE: 20190309
